FAERS Safety Report 18588314 (Version 1)
Quarter: 2020Q4

REPORT INFORMATION
  Report Type: Spontaneous
  Country: US (occurrence: US)
  Receive Date: 20201207
  Receipt Date: 20201207
  Transmission Date: 20210114
  Serious: No
  Sender: FDA-Public Use
  Company Number: US-JUBILANT CADISTA PHARMACEUTICALS-2020JUB00080

PATIENT
  Age: 76 Year
  Sex: Male
  Weight: 75.28 kg

DRUGS (8)
  1. CLOPIDOGREL [Concomitant]
     Active Substance: CLOPIDOGREL BISULFATE
  2. HCTZ [Concomitant]
     Active Substance: HYDROCHLOROTHIAZIDE
  3. IRBESARTAN. [Concomitant]
     Active Substance: IRBESARTAN
  4. METHYLPREDNISOLONE. [Suspect]
     Active Substance: METHYLPREDNISOLONE
     Indication: URTICARIA
     Dosage: UNK, AS DIRECTED PER THE PACKAGE
     Route: 048
     Dates: start: 20200120, end: 20200122
  5. ATORVASTATIN [Concomitant]
     Active Substance: ATORVASTATIN
  6. CARVEDILOL. [Concomitant]
     Active Substance: CARVEDILOL
  7. AMLODIPINE [Concomitant]
     Active Substance: AMLODIPINE BESYLATE
  8. DOXAZOSIN [Concomitant]
     Active Substance: DOXAZOSIN MESYLATE

REACTIONS (2)
  - Chest pain [Recovered/Resolved]
  - Urticaria [Recovered/Resolved]

NARRATIVE: CASE EVENT DATE: 202001
